FAERS Safety Report 23369041 (Version 1)
Quarter: 2024Q1

REPORT INFORMATION
  Report Type: Spontaneous
  Country: GB (occurrence: GB)
  Receive Date: 20240105
  Receipt Date: 20240105
  Transmission Date: 20240409
  Serious: Yes (Disabling)
  Sender: FDA-Public Use
  Company Number: None

PATIENT

DRUGS (15)
  1. INCRUSE ELLIPTA [Suspect]
     Active Substance: UMECLIDINIUM BROMIDE
     Indication: Product used for unknown indication
     Dosage: UNK, 55MICROGRAMS/DOSE
     Route: 055
     Dates: start: 20231205
  2. AMLODIPINE [Concomitant]
     Active Substance: AMLODIPINE BESYLATE
     Indication: Product used for unknown indication
     Dosage: 1 DF, QD
     Route: 065
     Dates: start: 20171213
  3. ATORVASTATIN [Concomitant]
     Active Substance: ATORVASTATIN
     Indication: Product used for unknown indication
     Dosage: 1 DF, QD AT NIGHT - AVOID GRAPEFRUIT J...
     Route: 065
     Dates: start: 20190712
  4. BACLOFEN [Concomitant]
     Active Substance: BACLOFEN
     Indication: Product used for unknown indication
     Dosage: 0.5 DF, BID (HALF A TABLET TO BE TAKEN TWICE A DAY)
     Route: 065
     Dates: start: 20190219
  5. BENDROFLUMETHIAZIDE [Concomitant]
     Active Substance: BENDROFLUMETHIAZIDE
     Indication: Product used for unknown indication
     Dosage: 1 DF, QD EACH MORNING
     Route: 065
     Dates: start: 20230126
  6. COMIRNATY (TOZINAMERAN) [Concomitant]
     Active Substance: TOZINAMERAN
     Indication: Product used for unknown indication
     Dosage: 0.3 ML (QUALIFIER VALUE)
     Route: 030
     Dates: start: 20231011, end: 20231011
  7. FLUTICASONE FUROATE [Concomitant]
     Active Substance: FLUTICASONE FUROATE
     Indication: Product used for unknown indication
     Dosage: 2 DF, QD (TWO SPRAYS TO BE USED IN EACH NOSTRIL ONCE A DAY)
     Route: 065
     Dates: start: 20230412
  8. GABAPENTIN [Concomitant]
     Active Substance: GABAPENTIN
     Indication: Product used for unknown indication
     Dosage: UNK, ONE TABLET (300MG) IN MORNING AND LUNCH TIME AN...
     Route: 065
     Dates: start: 20201123
  9. INCRUSE ELLIPTA [Concomitant]
     Active Substance: UMECLIDINIUM BROMIDE
     Indication: Product used for unknown indication
     Dosage: 1 DF, QD
     Route: 055
     Dates: start: 20231205, end: 20240102
  10. IRBESARTAN [Concomitant]
     Active Substance: IRBESARTAN
     Indication: Product used for unknown indication
     Dosage: 1 DF, QD
     Route: 065
     Dates: start: 20171213
  11. LANSOPRAZOLE [Concomitant]
     Active Substance: LANSOPRAZOLE
     Indication: Product used for unknown indication
     Dosage: 1 DF, BID
     Route: 065
     Dates: start: 20171213
  12. MIRTAZAPINE [Concomitant]
     Active Substance: MIRTAZAPINE
     Indication: Product used for unknown indication
     Dosage: 1 DF, QD (AT NIGHT)
     Route: 065
     Dates: start: 20231109
  13. ACETAMINOPHEN [Concomitant]
     Active Substance: ACETAMINOPHEN
     Indication: Product used for unknown indication
     Dosage: UNK, ONE TO BE TAKEN EVERY 4-6 HOURS UP TO FOUR TIME...
     Route: 065
     Dates: start: 20180109
  14. TIMOLOL [Concomitant]
     Active Substance: TIMOLOL
     Indication: Product used for unknown indication
     Dosage: UNK, ONE DROP TO BE USED TWICE A DAY IN THE AFFECTED...
     Route: 065
     Dates: start: 20180109
  15. TRAMADOL [Concomitant]
     Active Substance: TRAMADOL\TRAMADOL HYDROCHLORIDE
     Indication: Product used for unknown indication
     Dosage: UNK, ONE TO BE TAKEN EVERY FOUR TO SIX HOURS. NO MOR...
     Route: 065
     Dates: start: 20201116

REACTIONS (1)
  - Ocular discomfort [Recovered/Resolved]

NARRATIVE: CASE EVENT DATE: 20231205
